FAERS Safety Report 17189357 (Version 2)
Quarter: 2020Q1

REPORT INFORMATION
  Report Type: Spontaneous
  Country: IE (occurrence: IE)
  Receive Date: 20191223
  Receipt Date: 20200130
  Transmission Date: 20200409
  Serious: Yes (Other)
  Sender: FDA-Public Use
  Company Number: IE-AMGEN-IRLSP2019210090

PATIENT
  Age: 60 Year
  Sex: Female

DRUGS (1)
  1. PROLIA [Suspect]
     Active Substance: DENOSUMAB
     Indication: OSTEOPENIA
     Dosage: 60 MILLIGRAM, Q6MO
     Route: 058
     Dates: start: 20190814

REACTIONS (7)
  - Epistaxis [Recovered/Resolved]
  - Rash papular [Recovered/Resolved]
  - Vomiting [Not Recovered/Not Resolved]
  - Skin haemorrhage [Recovered/Resolved]
  - Abdominal pain [Not Recovered/Not Resolved]
  - Middle insomnia [Not Recovered/Not Resolved]
  - Quality of life decreased [Not Recovered/Not Resolved]
